FAERS Safety Report 6283255-0 (Version None)
Quarter: 2009Q3

REPORT INFORMATION
  Report Type: 
  Country: None (occurrence: None)
  Receive Date: 20090724
  Receipt Date: 20090717
  Transmission Date: 20100115
  Serious: Yes (Hospitalization, Other)
  Sender: FDA-Public Use
  Company Number: HR-ABBOTT-09P-216-0585923-00

PATIENT
  Sex: Female

DRUGS (10)
  1. HUMIRA [Suspect]
     Indication: PSORIASIS
     Dates: start: 20090301, end: 20090601
  2. HUMIRA [Suspect]
     Indication: PSORIATIC ARTHROPATHY
  3. MEDROL [Concomitant]
     Indication: PSORIASIS
  4. MEDROL [Concomitant]
     Indication: PSORIATIC ARTHROPATHY
  5. CIKLOSPORIN [Concomitant]
     Indication: PSORIASIS
  6. CIKLOSPORIN [Concomitant]
     Indication: PSORIATIC ARTHROPATHY
  7. CA [Concomitant]
     Indication: PSORIASIS
  8. CA [Concomitant]
     Indication: PSORIATIC ARTHROPATHY
  9. VITAMIN D 600 [Concomitant]
     Indication: PSORIASIS
  10. VITAMIN D 600 [Concomitant]
     Indication: PSORIATIC ARTHROPATHY

REACTIONS (2)
  - DIARRHOEA [None]
  - FURUNCLE [None]
